FAERS Safety Report 9155994 (Version 2)
Quarter: 2013Q2

REPORT INFORMATION
  Report Type: Spontaneous
  Country: US (occurrence: US)
  Receive Date: 20130311
  Receipt Date: 20130624
  Transmission Date: 20140414
  Serious: No
  Sender: FDA-Public Use
  Company Number: US-009507513-1303USA005028

PATIENT
  Age: 74 Year
  Sex: Male
  Weight: 90.7 kg

DRUGS (9)
  1. CLARITIN [Suspect]
     Indication: URTICARIA
     Dosage: 20 MG, BID
     Route: 048
     Dates: start: 201302
  2. CLARITIN [Suspect]
     Indication: PRURITUS
  3. CLARITIN [Suspect]
     Indication: MEDICAL OBSERVATION
  4. CALCIUM (UNSPECIFIED) [Concomitant]
     Indication: PRODUCT USED FOR UNKNOWN INDICATION
     Dosage: 2 DF, QD
  5. OMEPRAZOLE [Concomitant]
     Indication: DYSPEPSIA
     Dosage: 40 MG, QD
  6. VITAMINS (UNSPECIFIED) [Concomitant]
     Indication: PRODUCT USED FOR UNKNOWN INDICATION
     Dosage: 1 DF, QD
  7. DOXAZOSIN MESYLATE [Concomitant]
     Indication: PROSTATIC DISORDER
     Dosage: 4 MG, QD
  8. HYDROXYZINE HYDROCHLORIDE [Concomitant]
     Indication: SLEEP DISORDER
     Dosage: 25 MG, BID
  9. HYDROXYZINE HYDROCHLORIDE [Concomitant]
     Indication: PRURITUS

REACTIONS (3)
  - Prescribed overdose [Unknown]
  - Inappropriate schedule of drug administration [Unknown]
  - Off label use [Unknown]
